FAERS Safety Report 5389867-0 (Version None)
Quarter: 2007Q3

REPORT INFORMATION
  Report Type: 
  Country: None (occurrence: None)
  Receive Date: 20070718
  Receipt Date: 20070716
  Transmission Date: 20080115
  Serious: Yes (Hospitalization)
  Sender: FDA-Public Use
  Company Number: PHNU2007DE02516

PATIENT
  Sex: Female

DRUGS (2)
  1. VOLTAREN [Suspect]
     Indication: HIP SURGERY
     Dosage: 1 DF, QD
     Route: 048
     Dates: start: 20020101
  2. JODTHYROX [Concomitant]

REACTIONS (1)
  - ACUTE MYELOID LEUKAEMIA [None]
